FAERS Safety Report 5870327-5 (Version None)
Quarter: 2008Q3

REPORT INFORMATION
  Report Type: 
  Country: None (occurrence: None)
  Receive Date: 20080904
  Receipt Date: 20070917
  Transmission Date: 20090109
  Serious: No
  Sender: FDA-Public Use
  Company Number: US-BRISTOL-MYERS SQUIBB COMPANY-13910005

PATIENT
  Age: 41 Year
  Sex: Male
  Weight: 143 kg

DRUGS (3)
  1. DEFINITY [Suspect]
  2. TOPROL-XL [Concomitant]
  3. ASPIRIN [Concomitant]

REACTIONS (1)
  - BACK PAIN [None]
